FAERS Safety Report 12383975 (Version 1)
Quarter: 2016Q2

REPORT INFORMATION
  Report Type: Spontaneous
  Country: JP (occurrence: JP)
  Receive Date: 20160519
  Receipt Date: 20160519
  Transmission Date: 20160815
  Serious: Yes (Death, Life-Threatening)
  Sender: FDA-Public Use
  Company Number: JP-ROCHE-1706169

PATIENT
  Age: 75 Year
  Sex: Female

DRUGS (11)
  1. RINDERON V [Concomitant]
     Active Substance: BETAMETHASONE VALERATE
     Indication: LYMPHOMA
     Route: 042
     Dates: start: 20150706, end: 20150714
  2. OMEPRAZOLE. [Concomitant]
     Active Substance: OMEPRAZOLE
     Route: 042
     Dates: start: 20150703, end: 20150718
  3. RITUXAN [Suspect]
     Active Substance: RITUXIMAB
     Indication: LYMPHOMA
     Route: 042
     Dates: start: 20150714, end: 20150714
  4. STRONGER NEO-MINOPHAGEN C [Concomitant]
     Active Substance: AMMONIUM GLYCYRRHIZATE\CYSTEINE HYDROCHLORIDE\GLYCINE
     Indication: LYMPHOMA
     Route: 042
     Dates: start: 20150617, end: 20150718
  5. DEXART [Concomitant]
     Active Substance: DEXAMETHASONE SODIUM PHOSPHATE
     Indication: PREMEDICATION
     Dosage: ONCE
     Route: 042
     Dates: start: 20150714, end: 20150714
  6. LASIX [Concomitant]
     Active Substance: FUROSEMIDE
     Indication: LYMPHOMA
     Route: 042
     Dates: start: 20150625, end: 20150718
  7. NICARDIPINE [Concomitant]
     Active Substance: NICARDIPINE
     Indication: HYPERTENSION
     Route: 042
     Dates: start: 20150714, end: 20150716
  8. RANITIDINE. [Concomitant]
     Active Substance: RANITIDINE
     Indication: PREMEDICATION
     Dosage: ONCE
     Route: 065
     Dates: start: 20150714, end: 20150714
  9. KAYTWO N [Concomitant]
     Active Substance: MENATETRENONE
     Indication: LYMPHOMA
     Route: 042
     Dates: start: 20150703, end: 20150718
  10. NICARDIPINE [Concomitant]
     Active Substance: NICARDIPINE
     Indication: ANGINA PECTORIS
  11. FINIBAX [Concomitant]
     Active Substance: DORIPENEM MONOHYDRATE
     Indication: LYMPHOMA
     Route: 042
     Dates: start: 20150708, end: 20150713

REACTIONS (4)
  - Enterococcal sepsis [Fatal]
  - Febrile neutropenia [Fatal]
  - Tumour lysis syndrome [Not Recovered/Not Resolved]
  - Acute kidney injury [Not Recovered/Not Resolved]

NARRATIVE: CASE EVENT DATE: 20150715
